FAERS Safety Report 9169445 (Version 1)
Quarter: 2013Q1

REPORT INFORMATION
  Report Type: Spontaneous
  Country: IT (occurrence: IT)
  Receive Date: 20130318
  Receipt Date: 20130318
  Transmission Date: 20140127
  Serious: Yes (Other)
  Sender: FDA-Public Use
  Company Number: IT-MYLANLABS-2013S1005007

PATIENT
  Age: 83 Year
  Sex: Female

DRUGS (1)
  1. ATORVASTATIN [Suspect]
     Dosage: 20MG DAILY
     Route: 065

REACTIONS (3)
  - Myopathy [Recovering/Resolving]
  - Muscle necrosis [Recovering/Resolving]
  - Abasia [Recovered/Resolved]
